FAERS Safety Report 8795942 (Version 2)
Quarter: 2012Q4

REPORT INFORMATION
  Report Type: 
  Country: FR (occurrence: FR)
  Receive Date: 20120919
  Receipt Date: 20120920
  Transmission Date: 20130627
  Serious: Yes (Hospitalization)
  Sender: FDA-Public Use
  Company Number: FR-PFIZER INC-2012227583

PATIENT
  Age: 66 Year
  Sex: Male

DRUGS (3)
  1. TAHOR [Suspect]
     Indication: HYPERCHOLESTEROLAEMIA
     Dosage: UNK mg, 1x/day
     Route: 048
     Dates: start: 201202
  2. SORIATANE [Suspect]
     Indication: PSORIASIS
     Dosage: 30 mg, 1x/day
     Route: 048
     Dates: start: 200809, end: 20120824
  3. BETASERC [Concomitant]
     Dosage: UNK
     Dates: start: 201202

REACTIONS (1)
  - Hepatocellular injury [Recovering/Resolving]
